FAERS Safety Report 6894093-X (Version None)
Quarter: 2010Q3

REPORT INFORMATION
  Report Type: 
  Country: None (occurrence: None)
  Receive Date: 20100802
  Receipt Date: 20100723
  Transmission Date: 20110219
  Serious: Yes (Hospitalization, Other)
  Sender: FDA-Public Use
  Company Number: JP-JNJFOC-20100404207

PATIENT
  Age: 81 Year
  Sex: Male

DRUGS (8)
  1. TOPIRAMATE [Suspect]
     Indication: EPILEPSY
     Route: 048
  2. TOPIRAMATE [Suspect]
     Route: 048
  3. PHENYTOIN SODIUM [Interacting]
     Indication: EPILEPSY
     Route: 048
  4. PHENYTOIN SODIUM [Interacting]
     Route: 048
  5. MAGMITT [Concomitant]
     Route: 048
  6. AMAZOLON [Concomitant]
     Route: 048
  7. RENIVACE [Concomitant]
     Route: 048
  8. GASTER D [Concomitant]
     Indication: PRODUCT USED FOR UNKNOWN INDICATION
     Route: 048

REACTIONS (6)
  - DRUG INTERACTION [None]
  - GASTROINTESTINAL SOUNDS ABNORMAL [None]
  - HALLUCINATION, AUDITORY [None]
  - HALLUCINATION, VISUAL [None]
  - ILEUS PARALYTIC [None]
  - PERIPHERAL COLDNESS [None]
